APPROVED DRUG PRODUCT: ONDANSETRON HYDROCHLORIDE PRESERVATIVE FREE
Active Ingredient: ONDANSETRON HYDROCHLORIDE
Strength: EQ 2MG BASE/ML
Dosage Form/Route: INJECTABLE;INJECTION
Application: A076759 | Product #001
Applicant: TEVA PHARMACEUTICALS USA INC
Approved: Nov 22, 2006 | RLD: No | RS: No | Type: DISCN